FAERS Safety Report 15420154 (Version 1)
Quarter: 2018Q3

REPORT INFORMATION
  Report Type: Spontaneous
  Country: JP (occurrence: JP)
  Receive Date: 20180924
  Receipt Date: 20180924
  Transmission Date: 20181010
  Serious: Yes (Other)
  Sender: FDA-Public Use
  Company Number: JP-MYLANLABS-2018M1069372

PATIENT
  Age: 8 Decade
  Sex: Female

DRUGS (1)
  1. DOXORUBICIN [Suspect]
     Active Substance: DOXORUBICIN
     Indication: OVARIAN CLEAR CELL CARCINOMA
     Dosage: RECEIVED 3 COURSES
     Route: 065

REACTIONS (1)
  - Drug ineffective [Unknown]
